FAERS Safety Report 10950339 (Version 2)
Quarter: 2015Q3

REPORT INFORMATION
  Report Type: Spontaneous
  Country: CA (occurrence: CA)
  Receive Date: 20150324
  Receipt Date: 20150710
  Transmission Date: 20151125
  Serious: Yes (Hospitalization)
  Sender: FDA-Public Use
  Company Number: CA-BAXTER-2015BAX014119

PATIENT
  Sex: Male

DRUGS (3)
  1. DIANEAL LOW CALCIUM PERITONEAL DIALYSIS SOLUTION WITH DEXTROSE [Suspect]
     Active Substance: CALCIUM CHLORIDE\DEXTROSE\MAGNESIUM CHLORIDE\SODIUM CHLORIDE\SODIUM LACTATE
     Indication: PERITONEAL DIALYSIS
     Route: 033
  2. DIANEAL W/ DEXTROSE 2.5% [Suspect]
     Active Substance: CALCIUM CHLORIDE\DEXTROSE\MAGNESIUM CHLORIDE\SODIUM CHLORIDE\SODIUM LACTATE
     Indication: PERITONEAL DIALYSIS
     Route: 033
  3. DIANEAL W/ DEXTROSE 2.5% [Suspect]
     Active Substance: CALCIUM CHLORIDE\DEXTROSE\MAGNESIUM CHLORIDE\SODIUM CHLORIDE\SODIUM LACTATE
     Indication: PERITONEAL DIALYSIS
     Route: 033

REACTIONS (4)
  - Bloody peritoneal effluent [Unknown]
  - Peritonitis [Unknown]
  - Peritoneal dialysis complication [Unknown]
  - Nausea [Unknown]

NARRATIVE: CASE EVENT DATE: 201503
